FAERS Safety Report 6773214-3 (Version None)
Quarter: 2010Q2

REPORT INFORMATION
  Report Type: 
  Country: None (occurrence: None)
  Receive Date: 20100616
  Receipt Date: 20100603
  Transmission Date: 20101027
  Serious: Yes (Other)
  Sender: FDA-Public Use
  Company Number: CA-GENENTECH-298374

PATIENT
  Sex: Male
  Weight: 111.1 kg

DRUGS (3)
  1. XOLAIR [Suspect]
     Indication: ASTHMA
     Dosage: 300 MG, 1/MONTH
     Route: 058
     Dates: start: 20060310
  2. XOLAIR [Suspect]
     Dosage: 300 MG, 1/MONTH
     Route: 058
     Dates: start: 20100211
  3. XOLAIR [Suspect]
     Dosage: 300 MG, 1/MONTH
     Route: 058
     Dates: start: 20100408

REACTIONS (6)
  - BLOOD PRESSURE INCREASED [None]
  - COUGH [None]
  - DYSPNOEA [None]
  - NASOPHARYNGITIS [None]
  - OBSTRUCTIVE AIRWAYS DISORDER [None]
  - SINUS CONGESTION [None]
